FAERS Safety Report 8922908 (Version 1)
Quarter: 2012Q4

REPORT INFORMATION
  Report Type: 
  Country: IL (occurrence: IL)
  Receive Date: 20121123
  Receipt Date: 20121123
  Transmission Date: 20130627
  Serious: Yes (Other)
  Sender: FDA-Public Use
  Company Number: IL-PFIZER INC-2012281625

PATIENT
  Age: 40 Year
  Sex: Male

DRUGS (2)
  1. CHAMPIX [Suspect]
     Dosage: UNK
  2. RECITAL [Concomitant]
     Indication: DEPRESSION
     Dosage: 40 mg, UNK

REACTIONS (4)
  - Bipolar disorder [Recovered/Resolved]
  - Mania [Recovered/Resolved]
  - Depression [Not Recovered/Not Resolved]
  - Restlessness [Unknown]
